FAERS Safety Report 8273286-3 (Version None)
Quarter: 2012Q2

REPORT INFORMATION
  Report Type: 
  Country: None (occurrence: None)
  Receive Date: 20120411
  Receipt Date: 20120410
  Transmission Date: 20120825
  Serious: Yes (Hospitalization)
  Sender: FDA-Public Use
  Company Number: US-PFIZER INC-2012040725

PATIENT

DRUGS (1)
  1. CHANTIX [Suspect]
     Dosage: UNK
     Dates: start: 20120210, end: 20120201

REACTIONS (7)
  - JOINT SWELLING [None]
  - TONGUE DISORDER [None]
  - ASTHENIA [None]
  - BONE PAIN [None]
  - DRUG INTOLERANCE [None]
  - ARTHRALGIA [None]
  - PAIN IN EXTREMITY [None]
